FAERS Safety Report 4269622-5 (Version None)
Quarter: 2004Q1

REPORT INFORMATION
  Report Type: 
  Country: None (occurrence: None)
  Receive Date: 20040112
  Receipt Date: 20031216
  Transmission Date: 20041129
  Serious: No
  Sender: FDA-Public Use
  Company Number: 03P-056-0246011-00

PATIENT
  Sex: 0

DRUGS (2)
  1. DEPAKENE [Suspect]
     Indication: EPILEPSY
     Dosage: PER ORAL
     Route: 048
  2. TOPIRAMATE [Suspect]
     Indication: EPILEPSY
     Dosage: PER ORAL
     Route: 048

REACTIONS (4)
  - COGNITIVE DISORDER [None]
  - DRUG INTERACTION [None]
  - ENCEPHALOPATHY [None]
  - HYPERAMMONAEMIA [None]
